FAERS Safety Report 14772558 (Version 2)
Quarter: 2018Q2

REPORT INFORMATION
  Report Type: Spontaneous
  Country: US (occurrence: US)
  Receive Date: 20180418
  Receipt Date: 20180523
  Transmission Date: 20180711
  Serious: No
  Sender: FDA-Public Use
  Company Number: US-ASTRAZENECA-2018SE35593

PATIENT
  Age: 27957 Day
  Sex: Female
  Weight: 111.6 kg

DRUGS (1)
  1. BYDUREON BCISE [Suspect]
     Active Substance: EXENATIDE
     Indication: TYPE 2 DIABETES MELLITUS
     Route: 058
     Dates: start: 20180302

REACTIONS (3)
  - Product quality issue [Unknown]
  - Injection site mass [Recovered/Resolved]
  - Underdose [Not Recovered/Not Resolved]

NARRATIVE: CASE EVENT DATE: 20180303
